FAERS Safety Report 13356148 (Version 6)
Quarter: 2017Q3

REPORT INFORMATION
  Report Type: Spontaneous
  Country: JP (occurrence: JP)
  Receive Date: 20170321
  Receipt Date: 20170710
  Transmission Date: 20171127
  Serious: Yes (Hospitalization, Other)
  Sender: FDA-Public Use
  Company Number: JP-PFIZER INC-2017118813

PATIENT
  Age: 89 Year
  Sex: Male
  Weight: 38 kg

DRUGS (16)
  1. JZOLOFT 25MG [Suspect]
     Active Substance: SERTRALINE HYDROCHLORIDE
     Indication: DEPRESSION
     Dosage: 25 MG, 1X/DAY
     Route: 048
     Dates: start: 20170216, end: 20170317
  2. JZOLOFT 25MG [Suspect]
     Active Substance: SERTRALINE HYDROCHLORIDE
     Indication: LISTLESS
  3. CARBOCISTEINE [Concomitant]
     Active Substance: CARBOCYSTEINE
     Indication: PRODUCTIVE COUGH
     Dosage: 250 MG, 4X/DAY
     Route: 048
     Dates: start: 20170131
  4. LANSOPRAZOLE TOWA [Concomitant]
     Indication: PROPHYLAXIS AGAINST GASTROINTESTINAL ULCER
     Dosage: 15 MG, DAILY
     Route: 048
     Dates: start: 20161122
  5. MECOBALAMIN TOWA [Concomitant]
     Indication: NEUROPATHY PERIPHERAL
     Dosage: 500 MG, 2X/DAY
     Route: 048
     Dates: start: 20170105
  6. BITAFANT F [Concomitant]
     Indication: NUTRITIONAL SUPPLEMENTATION
     Dosage: 25 MG, 2X/DAY
     Route: 048
     Dates: start: 20170127
  7. CHALDOL [Concomitant]
     Dosage: UNK
  8. AVELOX [Concomitant]
     Active Substance: MOXIFLOXACIN HYDROCHLORIDE
     Dosage: UNK
  9. RINDERON V [Concomitant]
     Active Substance: BETAMETHASONE VALERATE
     Dosage: UNK
  10. FUNGUARD [Concomitant]
     Active Substance: MICAFUNGIN SODIUM
     Indication: PNEUMONIA
     Dosage: 50 MG, 3X/DAY
     Route: 041
     Dates: start: 20170202, end: 20170220
  11. MONTELUKAST [Concomitant]
     Active Substance: MONTELUKAST SODIUM
     Indication: CHRONIC OBSTRUCTIVE PULMONARY DISEASE
     Dosage: 10 MG, DAILY
     Route: 048
     Dates: start: 20161208
  12. AMITIZA [Concomitant]
     Active Substance: LUBIPROSTONE
     Indication: CONSTIPATION
     Dosage: 24 MG, 2X/DAY
     Route: 048
     Dates: start: 20161122
  13. BROTIZOLAM [Concomitant]
     Active Substance: BROTIZOLAM
     Dosage: UNK
  14. PREDONINE [Concomitant]
     Active Substance: PREDNISOLONE
     Indication: CHRONIC OBSTRUCTIVE PULMONARY DISEASE
     Dosage: 5 MG, DAILY
     Route: 048
     Dates: start: 20170111, end: 20170302
  15. ASPARA POTASSIUM [Concomitant]
     Active Substance: POTASSIUM ASPARTATE
  16. PREDNISOLONE. [Concomitant]
     Active Substance: PREDNISOLONE
     Dosage: UNK
     Dates: start: 20170228

REACTIONS (1)
  - Hypokalaemia [Recovered/Resolved]

NARRATIVE: CASE EVENT DATE: 201702
